FAERS Safety Report 16745009 (Version 2)
Quarter: 2019Q3

REPORT INFORMATION
  Report Type: Report from Study
  Country: US (occurrence: US)
  Receive Date: 20190827
  Receipt Date: 20190829
  Transmission Date: 20191005
  Serious: Yes (Other)
  Sender: FDA-Public Use
  Company Number: US-GILEAD-2019-0424981

PATIENT
  Age: 26 Month
  Sex: Male
  Weight: 13 kg

DRUGS (4)
  1. AMLODIPINE [Concomitant]
     Active Substance: AMLODIPINE BESYLATE
     Dosage: 0.5 MG
     Route: 048
     Dates: start: 20190815
  2. TRACLEER [Concomitant]
     Active Substance: BOSENTAN
  3. AMBRISENTAN [Suspect]
     Active Substance: AMBRISENTAN
     Indication: PRODUCT USED FOR UNKNOWN INDICATION
     Dosage: 5 MG, QD
     Route: 048
     Dates: start: 20180829
  4. ADCIRCA [Concomitant]
     Active Substance: TADALAFIL
     Dosage: 10 MG
     Route: 048
     Dates: start: 20180424

REACTIONS (2)
  - Fatigue [Unknown]
  - Syncope [Recovered/Resolved]

NARRATIVE: CASE EVENT DATE: 20190824
